FAERS Safety Report 15840367 (Version 2)
Quarter: 2019Q1

REPORT INFORMATION
  Report Type: Spontaneous
  Country: US (occurrence: US)
  Receive Date: 20190118
  Receipt Date: 20190313
  Transmission Date: 20190417
  Serious: Yes (Other)
  Sender: FDA-Public Use
  Company Number: US-ASTRAZENECA-2019SE06778

PATIENT
  Age: 184 Day
  Sex: Female
  Weight: 8.2 kg

DRUGS (3)
  1. PREVACID [Concomitant]
     Active Substance: LANSOPRAZOLE
     Indication: GASTROOESOPHAGEAL REFLUX DISEASE
     Route: 048
  2. SYNAGIS [Suspect]
     Active Substance: PALIVIZUMAB
     Indication: CONGENITAL DIAPHRAGMATIC HERNIA
     Dosage: 120.0MG ONCE/SINGLE ADMINISTRATION
     Route: 030
     Dates: start: 20181115
  3. SYNAGIS [Suspect]
     Active Substance: PALIVIZUMAB
     Indication: CONGENITAL DIAPHRAGMATIC HERNIA
     Dosage: 130.0MG ONCE/SINGLE ADMINISTRATION
     Route: 030
     Dates: start: 20181217, end: 20181217

REACTIONS (12)
  - Condition aggravated [Unknown]
  - Eye disorder [Unknown]
  - Insomnia [Unknown]
  - Muscle twitching [Recovered/Resolved]
  - Off label use [Unknown]
  - Hypersomnia [Unknown]
  - Ear discomfort [Recovered/Resolved]
  - Irritability [Recovered/Resolved]
  - Screaming [Unknown]
  - Product use in unapproved indication [Unknown]
  - Anxiety [Unknown]
  - Head titubation [Unknown]

NARRATIVE: CASE EVENT DATE: 20181116
